FAERS Safety Report 22400183 (Version 1)
Quarter: 2023Q2

REPORT INFORMATION
  Report Type: Spontaneous
  Country: US (occurrence: None)
  Receive Date: 20230601
  Receipt Date: 20230601
  Transmission Date: 20230721
  Serious: Yes (Disabling, Other)
  Sender: FDA-Public Use
  Company Number: None

PATIENT
  Age: 37 Year
  Sex: Female
  Weight: 75 kg

DRUGS (1)
  1. GLATIRAMER ACETATE [Suspect]
     Active Substance: GLATIRAMER ACETATE
     Indication: Multiple sclerosis
     Dosage: SUBCUTANEOUS
     Route: 058
     Dates: start: 20160101, end: 20230405

REACTIONS (4)
  - Embolia cutis medicamentosa [None]
  - Deformity [None]
  - Eschar [None]
  - Tissue injury [None]

NARRATIVE: CASE EVENT DATE: 20230403
